FAERS Safety Report 14582424 (Version 8)
Quarter: 2018Q3

REPORT INFORMATION
  Report Type: Report from Study
  Country: IL (occurrence: IL)
  Receive Date: 20180228
  Receipt Date: 20180821
  Transmission Date: 20181010
  Serious: Yes (Other)
  Sender: FDA-Public Use
  Company Number: IL-JNJFOC-20180234957

PATIENT
  Age: 77 Year
  Sex: Female

DRUGS (1)
  1. SIMPONI [Suspect]
     Active Substance: GOLIMUMAB
     Indication: RHEUMATOID ARTHRITIS
     Route: 058
     Dates: start: 20180104

REACTIONS (7)
  - Ear discomfort [Not Recovered/Not Resolved]
  - Laboratory test abnormal [Unknown]
  - Tinnitus [Not Recovered/Not Resolved]
  - Allergic respiratory disease [Recovering/Resolving]
  - Pneumonia [Recovered/Resolved]
  - Central nervous system function test abnormal [Unknown]
  - Headache [Not Recovered/Not Resolved]

NARRATIVE: CASE EVENT DATE: 20180221
